FAERS Safety Report 4894640-3 (Version None)
Quarter: 2006Q1

REPORT INFORMATION
  Report Type: 
  Country: None (occurrence: None)
  Receive Date: 20060127
  Receipt Date: 20060118
  Transmission Date: 20060701
  Serious: Yes (Death, Other)
  Sender: FDA-Public Use
  Company Number: US-MERCK-0601USA02219

PATIENT

DRUGS (3)
  1. VIOXX [Suspect]
     Route: 048
     Dates: start: 20030101, end: 20031224
  2. BEXTRA [Suspect]
     Route: 065
     Dates: start: 20031224, end: 20041224
  3. BEXTRA [Suspect]
     Route: 065
     Dates: start: 20031224, end: 20041224

REACTIONS (1)
  - MYOCARDIAL INFARCTION [None]
